FAERS Safety Report 6164809-9 (Version None)
Quarter: 2009Q2

REPORT INFORMATION
  Report Type: 
  Country: None (occurrence: None)
  Receive Date: 20090423
  Receipt Date: 20090415
  Transmission Date: 20091009
  Serious: Yes (Hospitalization)
  Sender: FDA-Public Use
  Company Number: GB-JNJFOC-20090404194

PATIENT
  Age: 71 Year
  Sex: Male
  Weight: 89 kg

DRUGS (23)
  1. REMICADE [Suspect]
     Indication: PYODERMA
     Route: 042
  2. ADALAT [Concomitant]
  3. AMITRIPTLINE HYDROCHLORIDE TAB [Concomitant]
  4. ASPIRIN [Concomitant]
  5. ATENOLOL [Concomitant]
  6. AZATHIOPRINE [Concomitant]
  7. DERMOVATE [Concomitant]
  8. DIFFLAM [Concomitant]
     Route: 048
  9. ISOPROPYL MYRISTATE/LIQUID PARRAFIN [Concomitant]
  10. EMULSIFYING WAX [Concomitant]
  11. EPADERM [Concomitant]
  12. FERROUS SULFATE TAB [Concomitant]
  13. FRUSEMIDE [Concomitant]
  14. ISOSORBIDE MONONITRATE [Concomitant]
  15. LOPERAMIDE HCL [Concomitant]
  16. MS CONTIN [Concomitant]
  17. NITROLINGUAL [Concomitant]
  18. ORAMORPH SR [Concomitant]
  19. ACETAMINOPHEN [Concomitant]
  20. PREDNISOLONE [Concomitant]
  21. RAMIPRIL [Concomitant]
  22. RANITIDINE [Concomitant]
  23. SIMVASTATIN [Concomitant]

REACTIONS (3)
  - BOWEL MOVEMENT IRREGULARITY [None]
  - NAUSEA [None]
  - VOMITING [None]
